FAERS Safety Report 11364961 (Version 1)
Quarter: 2015Q3

REPORT INFORMATION
  Report Type: Spontaneous
  Country: DK (occurrence: FR)
  Receive Date: 20150811
  Receipt Date: 20150811
  Transmission Date: 20151125
  Serious: Yes (Other)
  Sender: FDA-Public Use
  Company Number: FR-FRI-1000078887

PATIENT
  Age: 81 Year
  Sex: Male

DRUGS (1)
  1. ESCITALOPRAM [Suspect]
     Active Substance: ESCITALOPRAM OXALATE
     Indication: ABNORMAL BEHAVIOUR
     Dosage: 5 MG
     Route: 048
     Dates: start: 20150310, end: 20150330

REACTIONS (4)
  - Condition aggravated [Recovered/Resolved]
  - Off label use [Recovered/Resolved]
  - Abnormal behaviour [Recovered/Resolved]
  - Cognitive disorder [Recovered/Resolved]

NARRATIVE: CASE EVENT DATE: 20150310
